FAERS Safety Report 8625590-4 (Version None)
Quarter: 2012Q3

REPORT INFORMATION
  Report Type: 
  Country: None (occurrence: None)
  Receive Date: 20120827
  Receipt Date: 20120820
  Transmission Date: 20120928
  Serious: Yes (Hospitalization)
  Sender: FDA-Public Use
  Company Number: US-PFIZER INC-2012195714

PATIENT
  Age: 26 Year
  Sex: Female

DRUGS (5)
  1. RISPERIDONE [Suspect]
     Indication: PSYCHIATRIC SYMPTOM
     Dosage: UNK
     Route: 065
  2. BACLOFEN [Suspect]
     Indication: MUSCLE SPASTICITY
     Dosage: UNK
     Route: 065
  3. OLANZAPINE [Suspect]
     Dosage: 20 MG DAILY
  4. OLANZAPINE [Suspect]
     Indication: PSYCHIATRIC SYMPTOM
     Dosage: UNK
  5. ZIPRASIDONE HCL [Suspect]
     Indication: PSYCHIATRIC SYMPTOM
     Dosage: UNK
     Route: 065

REACTIONS (9)
  - HALLUCINATIONS, MIXED [None]
  - INSOMNIA [None]
  - CLOSTRIDIUM DIFFICILE COLITIS [None]
  - MUSCLE SPASTICITY [None]
  - URINARY TRACT INFECTION [None]
  - CONDITION AGGRAVATED [None]
  - THERAPEUTIC RESPONSE DECREASED [None]
  - DELUSION [None]
  - ABULIA [None]
